FAERS Safety Report 17552752 (Version 2)
Quarter: 2020Q2

REPORT INFORMATION
  Report Type: Spontaneous
  Country: DE (occurrence: DE)
  Receive Date: 20200318
  Receipt Date: 20200406
  Transmission Date: 20200713
  Serious: Yes (Hospitalization, Other)
  Sender: FDA-Public Use
  Company Number: DE-AUROBINDO-AUR-APL-2020-012536

PATIENT
  Age: 55 Year
  Sex: Male
  Weight: 112 kg

DRUGS (36)
  1. IBUPROFEN. [Concomitant]
     Active Substance: IBUPROFEN
     Indication: PAIN
     Dosage: UNK
     Route: 048
  2. ASPIRIN. [Concomitant]
     Active Substance: ASPIRIN
     Dosage: UNK
     Route: 065
  3. CABERGOLINE. [Suspect]
     Active Substance: CABERGOLINE
     Indication: PRODUCT USED FOR UNKNOWN INDICATION
     Dosage: 3 MILLIGRAM, ONCE A DAY
     Route: 048
  4. SIMVASTATIN. [Suspect]
     Active Substance: SIMVASTATIN
     Indication: HYPERLIPIDAEMIA
     Dosage: 40 MILLIGRAM, ONCE A DAY (20 MG, 2X/DAY)
     Route: 048
  5. NACOM [Concomitant]
     Active Substance: CARBIDOPA\LEVODOPA
     Dosage: 200 MILLIGRAM
     Route: 048
  6. TREVILOR RETARD [Concomitant]
     Active Substance: VENLAFAXINE HYDROCHLORIDE
     Indication: PRODUCT USED FOR UNKNOWN INDICATION
     Dosage: 150 MILLIGRAM, ONCE A DAY (75 MG, 2X/DAY)
     Route: 048
  7. MAGNESIUM VERLA [Concomitant]
     Active Substance: MAGNESIUM
     Indication: PRODUCT USED FOR UNKNOWN INDICATION
     Dosage: UNK
     Route: 065
  8. LORMETAZEPAM [Concomitant]
     Active Substance: LORMETAZEPAM
     Dosage: 1 MILLIGRAM, ONCE A DAY
     Route: 065
     Dates: start: 200308
  9. MADOPAR [Concomitant]
     Active Substance: BENSERAZIDE HYDROCHLORIDE\LEVODOPA
     Indication: RESTLESS LEGS SYNDROME
     Dosage: 50 MILLIGRAM, 3 TIMES A DAY
     Route: 048
  10. LYRICA [Concomitant]
     Active Substance: PREGABALIN
     Indication: PRODUCT USED FOR UNKNOWN INDICATION
     Dosage: 300 MILLIGRAM, ONCE A DAY (150 MG, 2X/DAY)
     Route: 048
  11. PANTOZOL [Concomitant]
     Active Substance: PANTOPRAZOLE SODIUM
     Indication: PRODUCT USED FOR UNKNOWN INDICATION
     Dosage: 40 MILLIGRAM, ONCE A DAY
     Route: 048
  12. CABASERIL [Suspect]
     Active Substance: CABERGOLINE
     Dosage: 3 MILLIGRAM, ONCE A DAY
     Route: 048
  13. SIFROL [Suspect]
     Active Substance: PRAMIPEXOLE
     Indication: RESTLESS LEGS SYNDROME
     Dosage: UNK
     Route: 048
  14. ZOPICLONE [Concomitant]
     Active Substance: ZOPICLONE
     Indication: PRODUCT USED FOR UNKNOWN INDICATION
     Dosage: 7.5 MILLIGRAM, ONCE A DAY (1X/DAY (NIGHT))
     Route: 048
  15. PRAVASIN [Concomitant]
     Active Substance: PRAVASTATIN SODIUM
     Indication: PRODUCT USED FOR UNKNOWN INDICATION
     Dosage: UNK
     Route: 065
  16. MORPHINE [Concomitant]
     Active Substance: MORPHINE
     Indication: PAIN
     Dosage: UNK
     Route: 048
  17. ALLOPURINOL. [Concomitant]
     Active Substance: ALLOPURINOL
     Indication: HYPERURICAEMIA
     Dosage: 100 MILLIGRAM, ONCE A DAY (1X/DAY)
     Route: 048
  18. NOCTAMID [Concomitant]
     Active Substance: LORMETAZEPAM
     Indication: PRODUCT USED FOR UNKNOWN INDICATION
     Dosage: UNK
     Route: 065
  19. SIMVASTATIN. [Suspect]
     Active Substance: SIMVASTATIN
     Dosage: 20 MILLIGRAM, ONCE A DAY
     Route: 048
  20. CABASERIL [Suspect]
     Active Substance: CABERGOLINE
     Dosage: 2 MILLIGRAM, ONCE A DAY
     Route: 048
  21. SEROQUEL [Concomitant]
     Active Substance: QUETIAPINE FUMARATE
     Indication: PRODUCT USED FOR UNKNOWN INDICATION
     Dosage: 200 MILLIGRAM, ONCE A DAY (1X/DAY)
     Route: 048
  22. TOREM [Concomitant]
     Active Substance: TORSEMIDE
     Indication: PRODUCT USED FOR UNKNOWN INDICATION
     Dosage: 10 MILLIGRAM, TWO TIMES A DAY
     Route: 048
  23. PRAMIPEXOLE. [Suspect]
     Active Substance: PRAMIPEXOLE
     Indication: PRODUCT USED FOR UNKNOWN INDICATION
     Dosage: UNK
     Route: 065
  24. CAPTOPRIL. [Concomitant]
     Active Substance: CAPTOPRIL
     Indication: PRODUCT USED FOR UNKNOWN INDICATION
     Dosage: 12.5 MILLIGRAM, ONCE A DAY
     Route: 048
  25. CABASERIL [Suspect]
     Active Substance: CABERGOLINE
     Indication: RESTLESS LEGS SYNDROME
     Dosage: 4 MILLIGRAM, ONCE A DAY (1X/DAY)
     Route: 048
  26. CABASERIL [Suspect]
     Active Substance: CABERGOLINE
     Dosage: 1 MILLIGRAM, ONCE A DAY (1 MG, 1X/DAY)
     Route: 048
  27. NACOM [Concomitant]
     Active Substance: CARBIDOPA\LEVODOPA
     Indication: RESTLESS LEGS SYNDROME
     Dosage: UNK
     Route: 048
  28. ASPIRIN. [Concomitant]
     Active Substance: ASPIRIN
     Indication: PRODUCT USED FOR UNKNOWN INDICATION
     Dosage: 100 MILLIGRAM, ONCE A DAY
     Route: 048
  29. ALLOPURINOL. [Concomitant]
     Active Substance: ALLOPURINOL
     Dosage: 200 UNK
     Route: 065
  30. FERRO SANOL [Concomitant]
     Active Substance: FERROUS GLYCINE SULFATE
     Indication: PRODUCT USED FOR UNKNOWN INDICATION
     Dosage: 20 GTT DROPS, ONCE A DAY (20 GTT, 1X/DAY)
     Route: 048
  31. PRAMIPEXOLE. [Concomitant]
     Active Substance: PRAMIPEXOLE
     Indication: PRODUCT USED FOR UNKNOWN INDICATION
     Dosage: UNK
     Route: 048
     Dates: end: 2003
  32. DULOXETINE HYDROCHLORIDE. [Concomitant]
     Active Substance: DULOXETINE HYDROCHLORIDE
     Indication: PRODUCT USED FOR UNKNOWN INDICATION
     Dosage: 90 MILLIGRAM, ONCE A DAY
     Route: 065
  33. LORMETAZEPAM [Concomitant]
     Active Substance: LORMETAZEPAM
     Indication: PRODUCT USED FOR UNKNOWN INDICATION
     Dosage: UNK
     Route: 048
  34. TRAMAL [Concomitant]
     Active Substance: TRAMADOL
     Indication: PAIN
     Dosage: UNK
     Route: 048
  35. DELIX PLUS [Concomitant]
     Active Substance: HYDROCHLOROTHIAZIDE\RAMIPRIL
     Indication: PRODUCT USED FOR UNKNOWN INDICATION
     Dosage: 1 DOSAGE FORM, ONCE A DAY (1 DF, 1X/DAY)
     Route: 048
  36. OXYGESIC [Concomitant]
     Active Substance: OXYCODONE
     Indication: PAIN
     Dosage: UNK
     Route: 048

REACTIONS (52)
  - Aortic valve disease [Unknown]
  - Alcoholism [Recovered/Resolved with Sequelae]
  - Sleep apnoea syndrome [Not Recovered/Not Resolved]
  - Left ventricular hypertrophy [Recovering/Resolving]
  - Impulse-control disorder [Not Recovered/Not Resolved]
  - Back pain [Unknown]
  - Oedema peripheral [Recovered/Resolved]
  - Pain in extremity [Unknown]
  - Drug abuse [Unknown]
  - Cardiomegaly [Unknown]
  - Intentional overdose [Recovered/Resolved]
  - Logorrhoea [Not Recovered/Not Resolved]
  - Myocarditis [Not Recovered/Not Resolved]
  - Suicide attempt [Recovered/Resolved with Sequelae]
  - Myositis [Unknown]
  - Depression [Unknown]
  - Arthropathy [Unknown]
  - Personality disorder [Unknown]
  - Gynaecomastia [Unknown]
  - Periarthritis [Unknown]
  - Fluid retention [Recovered/Resolved]
  - Sleep disorder [Unknown]
  - Hepatic steatosis [Not Recovered/Not Resolved]
  - Renal cyst [Not Recovered/Not Resolved]
  - Condition aggravated [Unknown]
  - Depression suicidal [Not Recovered/Not Resolved]
  - Restless legs syndrome [Recovering/Resolving]
  - Hepatosplenomegaly [Unknown]
  - Bundle branch block left [Unknown]
  - Homicidal ideation [Unknown]
  - Aortic valve incompetence [Not Recovered/Not Resolved]
  - Dyspnoea [Recovered/Resolved]
  - Hepatosplenomegaly [Not Recovered/Not Resolved]
  - Hepatic cirrhosis [Not Recovered/Not Resolved]
  - Road traffic accident [Unknown]
  - Bilirubinuria [Unknown]
  - Umbilical hernia [Unknown]
  - Bone disorder [Unknown]
  - Gambling disorder [Not Recovered/Not Resolved]
  - Hyperphagia [Not Recovered/Not Resolved]
  - Costochondritis [Unknown]
  - Chest pain [Unknown]
  - Cerebrovascular accident [Recovered/Resolved with Sequelae]
  - Serum ferritin decreased [Unknown]
  - Blood creatine phosphokinase increased [Unknown]
  - Pulmonary hypertension [Not Recovered/Not Resolved]
  - Substance dependence [Not Recovered/Not Resolved]
  - Obesity [Not Recovered/Not Resolved]
  - Intentional self-injury [Unknown]
  - Somnolence [Unknown]
  - Insomnia [Recovering/Resolving]
  - Suicidal ideation [Unknown]
